FAERS Safety Report 5602395-X (Version None)
Quarter: 2008Q1

REPORT INFORMATION
  Report Type: 
  Country: None (occurrence: None)
  Receive Date: 20080118
  Receipt Date: 20080104
  Transmission Date: 20080703
  Serious: Yes (Death)
  Sender: FDA-Public Use
  Company Number: 2008001121

PATIENT
  Age: 22 Year
  Sex: Female

DRUGS (6)
  1. DIPHENHYDRAMINE HCL [Suspect]
     Dosage: UNSPECIFIED, ORAL
     Route: 048
  2. CODEINE SUL TAB [Suspect]
     Dosage: UNSPECIFIED, ORAL
     Route: 048
  3. HYDROCODONE BITARTRATE [Suspect]
     Dosage: UNSPECIFIED, ORAL
     Route: 048
  4. MEPERIDINE HCL [Suspect]
     Dosage: UNSPECIFIED, ORAL
     Route: 048
  5. AMPHETAMINE SULFATE [Suspect]
     Dosage: UNSPECIFIED, ORAL
     Route: 048
  6. PROPOXYPHENE (DEXTROPROPOXYPHENE) [Suspect]
     Dosage: UNSPECIFIED; ORAL
     Route: 048

REACTIONS (3)
  - CARDIAC ARREST [None]
  - DRUG TOXICITY [None]
  - RESPIRATORY ARREST [None]
